FAERS Safety Report 10178826 (Version 1)
Quarter: 2014Q2

REPORT INFORMATION
  Report Type: Spontaneous
  Country: IT (occurrence: IT)
  Receive Date: 20140519
  Receipt Date: 20140519
  Transmission Date: 20141212
  Serious: Yes (Life-Threatening, Hospitalization)
  Sender: FDA-Public Use
  Company Number: IT-ELI_LILLY_AND_COMPANY-IT201405004192

PATIENT
  Age: 55 Year
  Sex: Male

DRUGS (2)
  1. HUMALOG LISPRO [Suspect]
     Indication: PRODUCT USED FOR UNKNOWN INDICATION
     Dosage: 15 ML, UNKNOWN
     Route: 058
     Dates: start: 20140508, end: 20140508
  2. ISOPTIN                            /00014302/ [Suspect]
     Indication: PRODUCT USED FOR UNKNOWN INDICATION
     Dosage: 720 MG, UNKNOWN
     Route: 048
     Dates: start: 20140508, end: 20140508

REACTIONS (3)
  - Intentional self-injury [Recovering/Resolving]
  - Drug abuse [Recovering/Resolving]
  - Heart rate increased [Unknown]
